FAERS Safety Report 20029128 (Version 1)
Quarter: 2021Q4

REPORT INFORMATION
  Report Type: Spontaneous
  Country: US (occurrence: US)
  Receive Date: 20211103
  Receipt Date: 20211103
  Transmission Date: 20220303
  Serious: Yes (Other)
  Sender: FDA-Public Use
  Company Number: US-NOVARTISPH-NVSC2021US246544

PATIENT
  Age: 76 Year
  Sex: Male

DRUGS (3)
  1. AMIODARONE [Suspect]
     Active Substance: AMIODARONE
     Indication: Ventricular tachycardia
     Dosage: 200 (UNKNOWN UNITS), BID
     Route: 065
  2. CARVEDILOL [Suspect]
     Active Substance: CARVEDILOL
     Indication: Ventricular tachycardia
     Dosage: 12.5 (UNKNOWN UNITS), BID
     Route: 065
  3. MEXILETINE [Suspect]
     Active Substance: MEXILETINE
     Indication: Pulmonary toxicity
     Dosage: UNK
     Route: 065

REACTIONS (3)
  - Pulmonary toxicity [Unknown]
  - Ventricular arrhythmia [Unknown]
  - Product use in unapproved indication [Unknown]
